FAERS Safety Report 6093194-6 (Version None)
Quarter: 2009Q1

REPORT INFORMATION
  Report Type: 
  Country: None (occurrence: None)
  Receive Date: 20090226
  Receipt Date: 20090216
  Transmission Date: 20090719
  Serious: Yes (Hospitalization)
  Sender: FDA-Public Use
  Company Number: GB-WYE-G03127709

PATIENT
  Age: 60 Year
  Sex: Female

DRUGS (6)
  1. EFFEXOR [Suspect]
     Indication: ANXIETY
     Route: 048
     Dates: end: 20090118
  2. EFFEXOR [Suspect]
     Indication: DEPRESSION
  3. ZOPICLONE [Concomitant]
     Indication: INSOMNIA
     Route: 048
     Dates: end: 20090118
  4. OMEPRAZOLE [Concomitant]
     Route: 048
  5. CALCICHEW-D3 [Concomitant]
     Route: 048
  6. FUROSEMIDE [Concomitant]
     Indication: OEDEMA
     Route: 048
     Dates: end: 20090118

REACTIONS (4)
  - BLOOD ALKALINE PHOSPHATASE INCREASED [None]
  - BLOOD BILIRUBIN INCREASED [None]
  - CONFUSIONAL STATE [None]
  - DYSARTHRIA [None]
